APPROVED DRUG PRODUCT: SPIRONOLACTONE
Active Ingredient: SPIRONOLACTONE
Strength: 25MG
Dosage Form/Route: TABLET;ORAL
Application: A087086 | Product #001
Applicant: PHARMOBEDIENT CONSULTING LLC
Approved: Approved Prior to Jan 1, 1982 | RLD: No | RS: No | Type: DISCN